FAERS Safety Report 13965628 (Version 1)
Quarter: 2017Q3

REPORT INFORMATION
  Report Type: Report from Study
  Country: US (occurrence: US)
  Receive Date: 20170913
  Receipt Date: 20170913
  Transmission Date: 20171128
  Serious: Yes (Other)
  Sender: FDA-Public Use
  Company Number: US-JNJFOC-20160424307

PATIENT
  Age: 69 Year
  Sex: Male

DRUGS (16)
  1. IMBRUVICA [Suspect]
     Active Substance: IBRUTINIB
     Indication: CHRONIC LYMPHOCYTIC LEUKAEMIA
     Route: 048
     Dates: start: 20160502
  2. IMBRUVICA [Suspect]
     Active Substance: IBRUTINIB
     Indication: CHRONIC LYMPHOCYTIC LEUKAEMIA
     Route: 048
     Dates: start: 20160204, end: 20160404
  3. IMBRUVICA [Suspect]
     Active Substance: IBRUTINIB
     Indication: CHRONIC LYMPHOCYTIC LEUKAEMIA
     Route: 048
     Dates: start: 2016
  4. IMBRUVICA [Suspect]
     Active Substance: IBRUTINIB
     Indication: THERAPY NAIVE
     Route: 048
     Dates: start: 20160205, end: 201612
  5. ACYCLOVIR. [Concomitant]
     Active Substance: ACYCLOVIR
     Indication: PROPHYLAXIS
     Dosage: 400MG, BID
  6. CYCLOPENTOLATE. [Concomitant]
     Active Substance: CYCLOPENTOLATE
     Indication: MYDRIASIS
     Dates: start: 2017
  7. IMBRUVICA [Suspect]
     Active Substance: IBRUTINIB
     Indication: THERAPY NAIVE
     Route: 048
     Dates: start: 20160204, end: 20160404
  8. IMBRUVICA [Suspect]
     Active Substance: IBRUTINIB
     Indication: THERAPY NAIVE
     Route: 048
     Dates: start: 20160227, end: 2016
  9. IMBRUVICA [Suspect]
     Active Substance: IBRUTINIB
     Indication: CHRONIC LYMPHOCYTIC LEUKAEMIA
     Route: 048
     Dates: start: 20160205, end: 201612
  10. ACYCLOVIR. [Concomitant]
     Active Substance: ACYCLOVIR
     Indication: ANTIVIRAL TREATMENT
     Dosage: 400MG, BID
  11. MULTIVITAMINS [Concomitant]
     Active Substance: VITAMINS
  12. ALLOPURINOL. [Concomitant]
     Active Substance: ALLOPURINOL
  13. IMBRUVICA [Suspect]
     Active Substance: IBRUTINIB
     Indication: THERAPY NAIVE
     Route: 048
     Dates: start: 2016
  14. IMBRUVICA [Suspect]
     Active Substance: IBRUTINIB
     Indication: THERAPY NAIVE
     Route: 048
     Dates: start: 20160502
  15. IMBRUVICA [Suspect]
     Active Substance: IBRUTINIB
     Indication: CHRONIC LYMPHOCYTIC LEUKAEMIA
     Route: 048
     Dates: start: 20160227, end: 2016
  16. PREDNISOLONE. [Concomitant]
     Active Substance: PREDNISOLONE
     Dosage: 1 DROP IN BOTH EYES, EVERY 2 HOURS IN THE RIGHT EYE, AND 4 TIMES ON THE LEFT EYE
     Dates: start: 2017

REACTIONS (9)
  - Product formulation issue [Unknown]
  - Blood lactate dehydrogenase increased [Recovering/Resolving]
  - Liver disorder [Recovered/Resolved]
  - Suspected counterfeit product [Unknown]
  - Splenomegaly [Unknown]
  - Abdominal pain [Unknown]
  - Product physical issue [Unknown]
  - Dehydration [Unknown]
  - Diarrhoea [Recovered/Resolved]

NARRATIVE: CASE EVENT DATE: 2016
